FAERS Safety Report 6682584-6 (Version None)
Quarter: 2010Q2

REPORT INFORMATION
  Report Type: 
  Country: None (occurrence: None)
  Receive Date: 20100414
  Receipt Date: 20100414
  Transmission Date: 20101027
  Serious: Yes (Hospitalization)
  Sender: FDA-Public Use
  Company Number: None

PATIENT
  Sex: Female
  Weight: 62.7 kg

DRUGS (2)
  1. CARBOPLATIN [Suspect]
     Dosage: 407 MG
     Dates: end: 20100226
  2. TAXOL [Suspect]
     Dosage: 306 MG
     Dates: end: 20100226

REACTIONS (4)
  - DIZZINESS [None]
  - FALL [None]
  - HEAD INJURY [None]
  - MIDDLE INSOMNIA [None]
